FAERS Safety Report 6815338-8 (Version None)
Quarter: 2010Q3

REPORT INFORMATION
  Report Type: 
  Country: None (occurrence: None)
  Receive Date: 20100701
  Receipt Date: 20100701
  Transmission Date: 20110219
  Serious: Yes (Life-Threatening, Other)
  Sender: FDA-Public Use
  Company Number: None

PATIENT
  Sex: Female
  Weight: 40 kg

DRUGS (4)
  1. TREANDA [Suspect]
     Indication: CHRONIC LYMPHOCYTIC LEUKAEMIA
     Dosage: 118 MG ONCE IV
     Route: 042
     Dates: start: 20100504
  2. IMMUNE GLOBULIN INTRAVENOUS (HUMAN) [Concomitant]
  3. GRANISETRON HCL [Concomitant]
  4. NEUPOGEN [Concomitant]

REACTIONS (1)
  - HAEMOLYSIS [None]
